FAERS Safety Report 8120257-3 (Version None)
Quarter: 2012Q1

REPORT INFORMATION
  Report Type: 
  Country: None (occurrence: None)
  Receive Date: 20120207
  Receipt Date: 20120130
  Transmission Date: 20120608
  Serious: Yes (Other)
  Sender: FDA-Public Use
  Company Number: PHHY2012MX008239

PATIENT
  Sex: Female

DRUGS (2)
  1. IMDUR [Concomitant]
     Dosage: 1 DF, DAILY
     Dates: start: 20080501
  2. DIOVAN HCT [Suspect]
     Indication: HYPERTENSION
     Dosage: 1 DF (160/12.5 MG), DAILY
     Dates: start: 20080801, end: 20111201

REACTIONS (4)
  - ANGINA UNSTABLE [None]
  - PAIN IN EXTREMITY [None]
  - BLOOD PRESSURE INCREASED [None]
  - BACK PAIN [None]
